FAERS Safety Report 4893902-3 (Version None)
Quarter: 2006Q1

REPORT INFORMATION
  Report Type: 
  Country: None (occurrence: None)
  Receive Date: 20060127
  Receipt Date: 20050128
  Transmission Date: 20060701
  Serious: No
  Sender: FDA-Public Use
  Company Number: US-GLAXOSMITHKLINE-A0542839A

PATIENT
  Age: 45 Year
  Sex: Female

DRUGS (2)
  1. WELLBUTRIN [Suspect]
     Indication: DEPRESSION
     Dosage: 75MG THREE TIMES PER DAY
     Route: 048
     Dates: start: 20040101
  2. CENESTIN [Concomitant]

REACTIONS (3)
  - DRUG INEFFECTIVE [None]
  - FEELING JITTERY [None]
  - INSOMNIA [None]
